FAERS Safety Report 12220972 (Version 3)
Quarter: 2020Q3

REPORT INFORMATION
  Report Type: Spontaneous
  Country: ES (occurrence: ES)
  Receive Date: 20160330
  Receipt Date: 20200709
  Transmission Date: 20201102
  Serious: Yes (Other)
  Sender: FDA-Public Use
  Company Number: ES-AMGEN-ESPSP2016017441

PATIENT
  Age: 51 Year
  Sex: Male
  Weight: 101 kg

DRUGS (7)
  1. SIMVASTATIN. [Concomitant]
     Active Substance: SIMVASTATIN
     Indication: HYPERCHOLESTEROLAEMIA
  2. MASTICAL D [Concomitant]
     Indication: OSTEOPOROSIS
     Dosage: 1 DOSAGE FORM, Q12H
     Route: 050
     Dates: start: 20140707
  3. SIMVASTATIN. [Concomitant]
     Active Substance: SIMVASTATIN
     Indication: DYSLIPIDAEMIA
     Dosage: 10 MILLIGRAM, QD
     Route: 048
     Dates: start: 20130527
  4. ENALAPRIL EDIGEN [Concomitant]
     Indication: HYPERTENSION
     Dosage: 10 MILLIGRAM, QD
     Route: 048
     Dates: start: 20061006
  5. PROLIA [Suspect]
     Active Substance: DENOSUMAB
     Indication: OSTEOPOROSIS
     Dosage: 60 MILLIGRAM, Q6MO
     Route: 058
     Dates: start: 20160114
  6. MASTICAL D [Concomitant]
     Indication: SPINAL COMPRESSION FRACTURE
  7. OMEPRAZOLE SANDOZ [OMEPRAZOLE] [Concomitant]
     Indication: GASTROOESOPHAGEAL REFLUX DISEASE
     Dosage: 20 MILLIGRAM, Q12H
     Route: 048
     Dates: start: 20080630

REACTIONS (2)
  - Diarrhoea [Recovering/Resolving]
  - Humerus fracture [Unknown]

NARRATIVE: CASE EVENT DATE: 20160114
